FAERS Safety Report 8587250-8 (Version None)
Quarter: 2012Q3

REPORT INFORMATION
  Report Type: 
  Country: None (occurrence: None)
  Receive Date: 20120810
  Receipt Date: 20110902
  Transmission Date: 20120928
  Serious: No
  Sender: FDA-Public Use
  Company Number: US-ASTRAZENECA-2011SE52961

PATIENT
  Age: 81 Year
  Sex: Female
  Weight: 81.6 kg

DRUGS (3)
  1. ALADAX [Concomitant]
     Indication: HYPERCHOLESTEROLAEMIA
  2. CRESTOR [Suspect]
     Indication: HYPERCHOLESTEROLAEMIA
     Route: 048
     Dates: start: 20080101
  3. ARIMIDEX [Suspect]
     Indication: BREAST CANCER
     Route: 048
     Dates: start: 20060301

REACTIONS (1)
  - DRY MOUTH [None]
